FAERS Safety Report 18253348 (Version 1)
Quarter: 2020Q3

REPORT INFORMATION
  Report Type: Spontaneous
  Country: US (occurrence: US)
  Receive Date: 20200910
  Receipt Date: 20200910
  Transmission Date: 20201103
  Serious: No
  Sender: FDA-Public Use
  Company Number: US-GLAXOSMITHKLINE-US2020AMR180780

PATIENT
  Sex: Male

DRUGS (1)
  1. EXCEDRIN [Suspect]
     Active Substance: ACETAMINOPHEN\ASPIRIN\CAFFEINE
     Indication: PRODUCT USED FOR UNKNOWN INDICATION
     Dosage: UNK

REACTIONS (7)
  - Tooth loss [Unknown]
  - Balance disorder [Unknown]
  - Depression [Unknown]
  - Amnesia [Unknown]
  - Spinal operation [Unknown]
  - Headache [Not Recovered/Not Resolved]
  - Tooth fracture [Unknown]
